FAERS Safety Report 15642824 (Version 1)
Quarter: 2018Q4

REPORT INFORMATION
  Report Type: Spontaneous
  Country: US (occurrence: US)
  Receive Date: 20181120
  Receipt Date: 20181120
  Transmission Date: 20190205
  Serious: Yes (Hospitalization, Other)
  Sender: FDA-Public Use
  Company Number: None

PATIENT
  Age: 43 Year
  Sex: Male
  Weight: 170 kg

DRUGS (7)
  1. TESTOSTERONE CYPIONATE. [Suspect]
     Active Substance: TESTOSTERONE CYPIONATE
     Indication: HYPOGONADISM
     Dosage: ?          OTHER FREQUENCY:WEEKLY;?
     Route: 030
     Dates: start: 20180315, end: 20181115
  2. ADIPEX-P [Suspect]
     Active Substance: PHENTERMINE HYDROCHLORIDE
     Indication: OBESITY
     Route: 048
  3. MODAFINIL 200 MG PO DAILY [Concomitant]
  4. PANTOPRAZOLE 40 MG PO DAILY [Concomitant]
  5. LEVOTHYROXINE 50 MCG PO DAILY [Concomitant]
  6. DAPAGLIFLOZIN 10 MG PO DAILY [Concomitant]
  7. MONTELUKAST 10 MG PO NIGHTLY [Concomitant]

REACTIONS (3)
  - Cardiac failure congestive [None]
  - Drug ineffective [None]
  - Cardiac failure acute [None]

NARRATIVE: CASE EVENT DATE: 20181115
